FAERS Safety Report 13367681 (Version 3)
Quarter: 2019Q1

REPORT INFORMATION
  Report Type: Report from Study
  Country: US (occurrence: US)
  Receive Date: 20170324
  Receipt Date: 20190222
  Transmission Date: 20190417
  Serious: Yes (Hospitalization)
  Sender: FDA-Public Use
  Company Number: US-PFIZER INC-2017120890

PATIENT
  Age: 13 Year
  Sex: Female
  Weight: 34.2 kg

DRUGS (7)
  1. MERCAPTOPURINE. [Suspect]
     Active Substance: MERCAPTOPURINE
     Indication: ACUTE LYMPHOCYTIC LEUKAEMIA
     Dosage: 50 MG, 1X/DAY
     Route: 048
     Dates: start: 20160930, end: 20170103
  2. MERCAPTOPURINE. [Suspect]
     Active Substance: MERCAPTOPURINE
     Dosage: 50 MG, 1X/DAY
     Route: 048
     Dates: start: 20170112
  3. INCB018424 [Suspect]
     Active Substance: RUXOLITINIB
     Indication: ACUTE LYMPHOCYTIC LEUKAEMIA
     Dosage: 50 MG, 2X/DAY
     Route: 048
     Dates: start: 20160930, end: 20170103
  4. INCB018424 [Suspect]
     Active Substance: RUXOLITINIB
     Dosage: 50 MG, 2X/DAY
     Route: 048
     Dates: start: 20170110
  5. PEGASPARGASE [Suspect]
     Active Substance: PEGASPARGASE
     Indication: ACUTE LYMPHOCYTIC LEUKAEMIA
     Dosage: 3300 IU, SINGLE
     Route: 042
     Dates: start: 20161014
  6. VINCRISTINE SULFATE. [Suspect]
     Active Substance: VINCRISTINE SULFATE
     Dosage: 1.97 MG, SINGLE
     Route: 042
     Dates: start: 20170110
  7. VINCRISTINE SULFATE. [Suspect]
     Active Substance: VINCRISTINE SULFATE
     Indication: ACUTE LYMPHOCYTIC LEUKAEMIA
     Dosage: 1.97 MG, SINGLE
     Route: 042
     Dates: start: 20161014, end: 20170103

REACTIONS (2)
  - Condition aggravated [Recovered/Resolved]
  - Decreased appetite [Recovered/Resolved]

NARRATIVE: CASE EVENT DATE: 20170105
